FAERS Safety Report 19294918 (Version 1)
Quarter: 2021Q2

REPORT INFORMATION
  Report Type: Report from Study
  Country: IT (occurrence: IT)
  Receive Date: 20210524
  Receipt Date: 20210524
  Transmission Date: 20210717
  Serious: Yes (Other)
  Sender: FDA-Public Use
  Company Number: IT-TEVA-2021-IT-1914005

PATIENT
  Age: 57 Year
  Sex: Female

DRUGS (6)
  1. ONDANSETRON HYDROCHLORIDE. [Concomitant]
     Active Substance: ONDANSETRON HYDROCHLORIDE
     Indication: VOMITING
  2. MUTABON [Concomitant]
     Active Substance: AMITRIPTYLINE HYDROCHLORIDE\PERPHENAZINE
     Indication: ANXIETY
  3. FLUOROURACILE HIKMA [Suspect]
     Active Substance: FLUOROURACIL
     Indication: BREAST CANCER
     Route: 065
     Dates: start: 20210114
  4. ENDOXAN BAXTER [Suspect]
     Active Substance: CYCLOPHOSPHAMIDE
     Indication: BREAST CANCER
     Route: 065
     Dates: start: 20210114
  5. EPIRUBICINA TEVA [Suspect]
     Active Substance: EPIRUBICIN
     Indication: BREAST CANCER
     Route: 065
     Dates: start: 20210114
  6. DEXAMETHASONE. [Concomitant]
     Active Substance: DEXAMETHASONE
     Indication: ANTIINFLAMMATORY THERAPY

REACTIONS (7)
  - Oral discomfort [Recovering/Resolving]
  - Dermatitis acneiform [Recovering/Resolving]
  - Erythema [Recovering/Resolving]
  - Vomiting [Recovering/Resolving]
  - Somnolence [Recovering/Resolving]
  - Hyperaesthesia [Recovering/Resolving]
  - Neutropenia [Recovering/Resolving]

NARRATIVE: CASE EVENT DATE: 20210114
